FAERS Safety Report 20610889 (Version 3)
Quarter: 2022Q2

REPORT INFORMATION
  Report Type: Spontaneous
  Country: JP (occurrence: JP)
  Receive Date: 20220318
  Receipt Date: 20220606
  Transmission Date: 20220720
  Serious: No
  Sender: FDA-Public Use
  Company Number: JP-GLAXOSMITHKLINE-JP2022JPN046436

PATIENT

DRUGS (6)
  1. SOTROVIMAB [Suspect]
     Active Substance: SOTROVIMAB
     Indication: COVID-19
     Dosage: 500 MG/DAY
     Route: 041
     Dates: start: 20220310, end: 20220310
  2. MAGNESIUM OXIDE [Suspect]
     Active Substance: MAGNESIUM OXIDE
     Indication: Constipation
     Dosage: 990 MG/DAY
     Route: 048
     Dates: start: 20211115, end: 20220422
  3. ACETAMINOPHEN [Suspect]
     Active Substance: ACETAMINOPHEN
     Indication: Pyrexia
     Dosage: 400 MG/DAY, USED AS NEEDED (10 DOSES)
     Route: 048
     Dates: start: 20220310
  4. ACETAMINOPHEN [Suspect]
     Active Substance: ACETAMINOPHEN
     Indication: COVID-19
  5. DEXTROMETHORPHAN [Suspect]
     Active Substance: DEXTROMETHORPHAN
     Indication: Cough
     Dosage: 45 MG/DAY, USED AS NEEDED (10 DOSES)
     Route: 048
     Dates: start: 20220310
  6. DEXTROMETHORPHAN [Suspect]
     Active Substance: DEXTROMETHORPHAN
     Indication: COVID-19

REACTIONS (2)
  - Exposure during pregnancy [Unknown]
  - Live birth [Unknown]
